FAERS Safety Report 7488205-7 (Version None)
Quarter: 2011Q2

REPORT INFORMATION
  Report Type: 
  Country: None (occurrence: None)
  Receive Date: 20110518
  Receipt Date: 20110509
  Transmission Date: 20111010
  Serious: Yes (Other)
  Sender: FDA-Public Use
  Company Number: PHHY2009GB15365

PATIENT
  Sex: Male

DRUGS (7)
  1. BENZODIAZEPINE DERIVATIVES [Concomitant]
  2. DIAZEPAM [Concomitant]
     Indication: ANXIETY
     Dosage: 2 MG, TID, PRN
     Dates: start: 20090401
  3. TEMAZ [Concomitant]
     Indication: INSOMNIA
     Dosage: 20 MG DAILY
     Route: 048
     Dates: start: 20090401
  4. DIAZEPAM [Concomitant]
     Indication: AGITATION
  5. LITHIUM [Concomitant]
  6. STELAZINE [Concomitant]
     Dosage: 5 MG, BID
     Route: 048
     Dates: start: 20090417
  7. CLOZARIL [Suspect]
     Indication: SCHIZOPHRENIA
     Dosage: 225 MG DAILY
     Route: 048
     Dates: start: 20081210, end: 20090413

REACTIONS (8)
  - WHITE BLOOD CELL COUNT DECREASED [None]
  - AGGRESSION [None]
  - AGRANULOCYTOSIS [None]
  - PSYCHOTIC DISORDER [None]
  - DELUSION [None]
  - NEUTROPENIA [None]
  - HALLUCINATION, AUDITORY [None]
  - INSOMNIA [None]
